FAERS Safety Report 16881475 (Version 1)
Quarter: 2019Q4

REPORT INFORMATION
  Report Type: Spontaneous
  Country: FR (occurrence: FR)
  Receive Date: 20191003
  Receipt Date: 20191003
  Transmission Date: 20200122
  Serious: Yes (Disabling, Other)
  Sender: FDA-Public Use
  Company Number: FR-PFIZER INC-2019420646

PATIENT
  Age: 70 Year
  Sex: Female

DRUGS (6)
  1. MIANSERIN HYDROCHLORIDE [Suspect]
     Active Substance: MIANSERIN HYDROCHLORIDE
     Indication: DEPRESSIVE SYMPTOM
     Dosage: 10 MG, 1X/DAY
     Route: 065
     Dates: start: 201901
  2. DEPAKOTE [Suspect]
     Active Substance: DIVALPROEX SODIUM
     Indication: BIPOLAR DISORDER
     Dosage: 5000 MG, 1X/DAY, (IN THE EVENING)
     Route: 065
     Dates: start: 2012, end: 20181124
  3. MYSOLINE [Suspect]
     Active Substance: PRIMIDONE
     Dosage: 2 DF, 1X/DAY, (1 TABLET IN THE MORNING AND ONE IN THE EVENING)
  4. GABAPENTIN. [Suspect]
     Active Substance: GABAPENTIN
     Indication: TREMOR
     Dosage: 1500 MG, 1X/DAY
     Route: 065
     Dates: start: 201706, end: 201901
  5. MYSOLINE [Suspect]
     Active Substance: PRIMIDONE
     Indication: TREMOR
     Dosage: 500 MG, 1X/DAY
     Route: 065
     Dates: start: 201901
  6. DEPAKOTE [Suspect]
     Active Substance: DIVALPROEX SODIUM
     Dosage: 500 MG, UNK
     Route: 065
     Dates: start: 2012, end: 201902

REACTIONS (8)
  - Cerebral disorder [Not Recovered/Not Resolved]
  - Nystagmus [Not Recovered/Not Resolved]
  - Neurodegenerative disorder [Not Recovered/Not Resolved]
  - Multiple system atrophy [Not Recovered/Not Resolved]
  - Tremor [Recovered/Resolved]
  - Balance disorder [Unknown]
  - Vertigo [Not Recovered/Not Resolved]
  - Vertigo positional [Unknown]

NARRATIVE: CASE EVENT DATE: 2014
